FAERS Safety Report 10942405 (Version 2)
Quarter: 2015Q2

REPORT INFORMATION
  Report Type: Spontaneous
  Country: US (occurrence: US)
  Receive Date: 20150322
  Receipt Date: 20150524
  Transmission Date: 20150821
  Serious: No
  Sender: FDA-Public Use
  Company Number: US-JNJFOC-20130520496

PATIENT
  Age: 35 Year
  Sex: Male
  Weight: 124.74 kg

DRUGS (5)
  1. ACARBOSE. [Concomitant]
     Active Substance: ACARBOSE
  2. INVOKANA [Suspect]
     Active Substance: CANAGLIFLOZIN
     Indication: TYPE 2 DIABETES MELLITUS
     Route: 048
     Dates: start: 20130502
  3. METFORMIN [Concomitant]
     Active Substance: METFORMIN HYDROCHLORIDE
  4. SULFONYLUREA AGENT [Concomitant]
     Active Substance: UNSPECIFIED INGREDIENT
  5. PIOGLITAZONE [Concomitant]
     Active Substance: PIOGLITAZONE

REACTIONS (3)
  - Penile swelling [Recovered/Resolved]
  - Dysuria [Recovered/Resolved]
  - Penile pain [Recovered/Resolved]

NARRATIVE: CASE EVENT DATE: 20130505
